FAERS Safety Report 10345343 (Version 1)
Quarter: 2014Q3

REPORT INFORMATION
  Report Type: Spontaneous
  Country: MA (occurrence: MA)
  Receive Date: 20140728
  Receipt Date: 20140728
  Transmission Date: 20150326
  Serious: Yes (Other)
  Sender: FDA-Public Use
  Company Number: MA-SA-2014SA097940

PATIENT
  Age: 27 Year
  Sex: Female

DRUGS (2)
  1. ISONIAZID/RIFAMPICIN [Suspect]
     Active Substance: ISONIAZID\RIFAMPIN
     Indication: TUBERCULOUS PLEURISY
     Route: 065
  2. ETHAMBUTOL/ISONIAZID/PYRAZINAMIDE/RIFAMPICIN [Suspect]
     Active Substance: ETHAMBUTOL\ISONIAZID\PYRAZINAMIDE\RIFAMYCIN
     Indication: TUBERCULOUS PLEURISY
     Route: 065

REACTIONS (18)
  - Face oedema [Recovered/Resolved]
  - Eosinophilia [Recovered/Resolved]
  - Aspartate aminotransferase increased [Recovered/Resolved]
  - Rash macular [Recovered/Resolved]
  - Enanthema [Recovered/Resolved]
  - Pleural effusion [None]
  - Pyrexia [Recovered/Resolved]
  - Tachypnoea [Recovered/Resolved]
  - Rash [Recovered/Resolved]
  - Blood immunoglobulin G increased [Recovered/Resolved]
  - Drug reaction with eosinophilia and systemic symptoms [Recovered/Resolved]
  - Hepatocellular injury [None]
  - Human herpes virus 6 serology positive [None]
  - Erythema [Recovered/Resolved]
  - Leukocytosis [Recovered/Resolved]
  - Alanine aminotransferase increased [Recovered/Resolved]
  - Strawberry tongue [Recovered/Resolved]
  - Cheilitis [Recovered/Resolved]
